FAERS Safety Report 15060503 (Version 1)
Quarter: 2018Q2

REPORT INFORMATION
  Report Type: Spontaneous
  Country: TW (occurrence: TW)
  Receive Date: 20180625
  Receipt Date: 20180625
  Transmission Date: 20180711
  Serious: Yes (Hospitalization)
  Sender: FDA-Public Use
  Company Number: TW-ENDO PHARMACEUTICALS INC-2018-039769

PATIENT
  Age: 51 Year
  Sex: Female

DRUGS (3)
  1. VALPROIC ACID. [Concomitant]
     Active Substance: VALPROIC ACID
     Indication: MANIA
     Dosage: 1000 MG, DAILY
     Route: 065
  2. QUETIAPINE FUMARATE. [Suspect]
     Active Substance: QUETIAPINE FUMARATE
     Indication: MANIA
     Dosage: 200 MG, DAILY
     Route: 065
     Dates: start: 2016, end: 2016
  3. QUETIAPINE FUMARATE. [Suspect]
     Active Substance: QUETIAPINE FUMARATE
     Indication: BIPOLAR I DISORDER
     Dosage: 400 MG, DAILY
     Route: 065
     Dates: start: 201605, end: 2016

REACTIONS (2)
  - Hypothyroidism [Recovering/Resolving]
  - Ileus paralytic [Recovered/Resolved]

NARRATIVE: CASE EVENT DATE: 2016
